FAERS Safety Report 10065620 (Version 2)
Quarter: 2014Q2

REPORT INFORMATION
  Report Type: Spontaneous
  Country: US (occurrence: US)
  Receive Date: 20140408
  Receipt Date: 20140428
  Transmission Date: 20141212
  Serious: No
  Sender: FDA-Public Use
  Company Number: US-PFIZER INC-2014096241

PATIENT
  Age: 69 Year
  Sex: Female
  Weight: 77.09 kg

DRUGS (1)
  1. PREMARIN [Suspect]
     Indication: HOT FLUSH
     Dosage: 0.3 MG, DAILY
     Route: 048
     Dates: end: 201403

REACTIONS (1)
  - Insomnia [Unknown]
